FAERS Safety Report 8156396-0 (Version None)
Quarter: 2012Q1

REPORT INFORMATION
  Report Type: 
  Country: None (occurrence: None)
  Receive Date: 20120222
  Receipt Date: 20120214
  Transmission Date: 20120608
  Serious: Yes (Other)
  Sender: FDA-Public Use
  Company Number: JP-ASTELLAS-2012JP001321

PATIENT
  Age: 6 Year
  Sex: Male

DRUGS (5)
  1. PROGRAF [Suspect]
     Indication: PROPHYLAXIS AGAINST GRAFT VERSUS HOST DISEASE
     Route: 065
  2. STEROID [Concomitant]
     Indication: PROPHYLAXIS AGAINST GRAFT VERSUS HOST DISEASE
     Route: 065
  3. FLUDARABINE PHOSPHATE [Concomitant]
     Dosage: 180 MG/M2, UNKNOWN/D
     Route: 065
  4. THIOTEPA [Concomitant]
     Dosage: 300 MG/M2, UNKNOWN/D
     Route: 065
  5. MELPHALAN HYDROCHLORIDE [Concomitant]
     Dosage: 210 MG/M2, UNKNOWN/D
     Route: 065

REACTIONS (5)
  - CHRONIC GRAFT VERSUS HOST DISEASE [None]
  - EPSTEIN-BARR VIRUS INFECTION [None]
  - DRUG INEFFECTIVE [None]
  - ACUTE GRAFT VERSUS HOST DISEASE [None]
  - HEPATITIS [None]
